FAERS Safety Report 12626637 (Version 3)
Quarter: 2016Q4

REPORT INFORMATION
  Report Type: Report from Study
  Country: AU (occurrence: AU)
  Receive Date: 20160805
  Receipt Date: 20161122
  Transmission Date: 20170207
  Serious: Yes (Other)
  Sender: FDA-Public Use
  Company Number: AU-REGENERON PHARMACEUTICALS, INC.-2016-19963

PATIENT

DRUGS (1)
  1. EYLEA [Suspect]
     Active Substance: AFLIBERCEPT
     Indication: NEOVASCULAR AGE-RELATED MACULAR DEGENERATION
     Dosage: 2 MG, 6 WEEKLY
     Route: 031
     Dates: start: 2015

REACTIONS (4)
  - Disturbance in attention [Unknown]
  - Blindness [Unknown]
  - Visual impairment [Unknown]
  - Visual acuity reduced [Unknown]
